FAERS Safety Report 6187229-X (Version None)
Quarter: 2009Q2

REPORT INFORMATION
  Report Type: 
  Country: None (occurrence: None)
  Receive Date: 20090512
  Receipt Date: 20090313
  Transmission Date: 20091009
  Serious: No
  Sender: FDA-Public Use
  Company Number: US-BAYER-200910825BCC

PATIENT
  Age: 45 Year
  Sex: Female
  Weight: 88 kg

DRUGS (2)
  1. ALEVE [Suspect]
     Indication: DYSMENORRHOEA
     Route: 048
     Dates: start: 20090101, end: 20090101
  2. ALEVE [Suspect]
     Dosage: TOTAL OF 3 TABLETS
     Route: 048
     Dates: start: 20090310, end: 20090313

REACTIONS (2)
  - DYSMENORRHOEA [None]
  - HEADACHE [None]
